FAERS Safety Report 7693907-3 (Version None)
Quarter: 2011Q3

REPORT INFORMATION
  Report Type: 
  Country: None (occurrence: None)
  Receive Date: 20110819
  Receipt Date: 20110809
  Transmission Date: 20111222
  Serious: Yes (Hospitalization)
  Sender: FDA-Public Use
  Company Number: AR-SANOFI-AVENTIS-2011SA043718

PATIENT
  Age: 78 Year
  Sex: Male
  Weight: 83 kg

DRUGS (5)
  1. ENALAPRIL MALEATE [Concomitant]
  2. THIAZIDES [Concomitant]
  3. ATENOLOL [Concomitant]
  4. ACENOCOUMAROL [Concomitant]
  5. DRONEDARONE HCL [Suspect]
     Indication: ATRIAL FIBRILLATION
     Route: 048
     Dates: start: 20110520

REACTIONS (1)
  - ISCHAEMIC STROKE [None]
